FAERS Safety Report 10846306 (Version 2)
Quarter: 2016Q1

REPORT INFORMATION
  Report Type: Spontaneous
  Country: US (occurrence: US)
  Receive Date: 20150220
  Receipt Date: 20160125
  Transmission Date: 20160525
  Serious: No
  Sender: FDA-Public Use
  Company Number: US-ABBVIE-14P-163-1314240-00

PATIENT

DRUGS (5)
  1. ALEVE [Suspect]
     Active Substance: NAPROXEN SODIUM
     Indication: PYREXIA
     Dosage: IF NEEDED
     Route: 065
  2. ALEVE [Suspect]
     Active Substance: NAPROXEN SODIUM
     Indication: PAIN
  3. HUMIRA [Suspect]
     Active Substance: ADALIMUMAB
     Indication: PRODUCT USED FOR UNKNOWN INDICATION
     Route: 065
     Dates: start: 20130605
  4. NALTREXONE [Concomitant]
     Active Substance: NALTREXONE
     Indication: PRODUCT USED FOR UNKNOWN INDICATION
     Dates: start: 200909
  5. VITAMIN C [Concomitant]
     Active Substance: ASCORBIC ACID
     Indication: PRODUCT USED FOR UNKNOWN INDICATION

REACTIONS (22)
  - Condition aggravated [Not Recovered/Not Resolved]
  - Pain [Recovered/Resolved]
  - Ocular discomfort [Not Recovered/Not Resolved]
  - Pyrexia [Recovered/Resolved]
  - Spondylitis [Unknown]
  - Nasopharyngitis [Unknown]
  - Feeling abnormal [Unknown]
  - Malaise [Unknown]
  - Tendon disorder [Unknown]
  - Constipation [Unknown]
  - Drug effect decreased [Unknown]
  - Musculoskeletal stiffness [Unknown]
  - Nasopharyngitis [Recovered/Resolved]
  - Back pain [Unknown]
  - Hyperaesthesia [Not Recovered/Not Resolved]
  - Muscle spasms [Unknown]
  - Respiratory tract congestion [Recovered/Resolved]
  - Exostosis [Unknown]
  - Oropharyngeal pain [Recovered/Resolved]
  - Hypersensitivity [Unknown]
  - Abdominal pain upper [Recovered/Resolved]
  - Viral infection [Recovered/Resolved]

NARRATIVE: CASE EVENT DATE: 2013
